FAERS Safety Report 16863460 (Version 1)
Quarter: 2019Q3

REPORT INFORMATION
  Report Type: Report from Study
  Country: US (occurrence: US)
  Receive Date: 20190927
  Receipt Date: 20190927
  Transmission Date: 20191005
  Serious: Yes (Other)
  Sender: FDA-Public Use
  Company Number: US-UCBSA-2019040855

PATIENT
  Sex: Male
  Weight: 84.4 kg

DRUGS (12)
  1. VIMPAT [Suspect]
     Active Substance: LACOSAMIDE
     Indication: EPILEPSY
     Dosage: 300 MILLIGRAM, 3X/DAY (TID)
     Route: 048
  2. TEGRETOL [Concomitant]
     Active Substance: CARBAMAZEPINE
     Indication: EPILEPSY
  3. TRILEPTAL [Concomitant]
     Active Substance: OXCARBAZEPINE
     Indication: EPILEPSY
  4. VIMPAT [Suspect]
     Active Substance: LACOSAMIDE
     Dosage: 300 MILLIGRAM, 3X/DAY (TID)
     Route: 048
     Dates: start: 2019, end: 2019
  5. VIMPAT [Suspect]
     Active Substance: LACOSAMIDE
     Dosage: 300 MG AM AND 600MG PM
     Route: 048
     Dates: start: 2019
  6. DEPAKOTE [Concomitant]
     Active Substance: DIVALPROEX SODIUM
     Indication: EPILEPSY
  7. VIMPAT [Suspect]
     Active Substance: LACOSAMIDE
     Dosage: DECREASED REGULAR DOSAGE
     Route: 048
  8. CARBATROL [Concomitant]
     Active Substance: CARBAMAZEPINE
     Indication: EPILEPSY
  9. OSCAL D [Concomitant]
     Active Substance: CALCIUM CARBONATE\CHOLECALCIFEROL
     Indication: PRODUCT USED FOR UNKNOWN INDICATION
  10. VITAMIN D3 [Concomitant]
     Active Substance: CHOLECALCIFEROL
     Indication: PRODUCT USED FOR UNKNOWN INDICATION
  11. VALIUM [Concomitant]
     Active Substance: DIAZEPAM
     Indication: PRODUCT USED FOR UNKNOWN INDICATION
  12. LEVETIRACETAM. [Suspect]
     Active Substance: LEVETIRACETAM
     Indication: SEIZURE
     Dosage: 2250 MILLIGRAM, 2X/DAY (BID)
     Route: 048

REACTIONS (8)
  - Stress [Unknown]
  - Overdose [Unknown]
  - Simple partial seizures [Unknown]
  - Insomnia [Unknown]
  - Off label use [Unknown]
  - Intentional product misuse [Unknown]
  - Generalised tonic-clonic seizure [Recovered/Resolved]
  - Aphasia [Unknown]
